FAERS Safety Report 13483455 (Version 2)
Quarter: 2017Q2

REPORT INFORMATION
  Report Type: Spontaneous
  Country: US (occurrence: US)
  Receive Date: 20170426
  Receipt Date: 20170510
  Transmission Date: 20170830
  Serious: Yes (Other)
  Sender: FDA-Public Use
  Company Number: US-009507513-1704USA012206

PATIENT
  Sex: Male
  Weight: 108.84 kg

DRUGS (1)
  1. TEMODAR [Suspect]
     Active Substance: TEMOZOLOMIDE
     Dosage: UNK
     Route: 048

REACTIONS (2)
  - Musculoskeletal disorder [Unknown]
  - Anaplastic astrocytoma [Unknown]

NARRATIVE: CASE EVENT DATE: 2015
